FAERS Safety Report 5661151-7 (Version None)
Quarter: 2008Q1

REPORT INFORMATION
  Report Type: 
  Country: None (occurrence: None)
  Receive Date: 20080306
  Receipt Date: 20080218
  Transmission Date: 20080703
  Serious: Yes (Hospitalization, Other)
  Sender: FDA-Public Use
  Company Number: 2007RR-10841

PATIENT
  Age: 76 Year
  Sex: Female

DRUGS (3)
  1. IBUPROFEN        TABLETS BP [Suspect]
     Indication: OSTEOARTHRITIS
  2. CALCIUM CARBONATE          (CALCIUM CARBONATE) [Suspect]
     Indication: DYSPEPSIA
     Dosage: 5.5 G, ORAL
     Route: 048
  3. SALBUTAMOL               (SALBUTAMOL) [Concomitant]

REACTIONS (6)
  - GASTRITIS EROSIVE [None]
  - HYPERCALCAEMIA [None]
  - MILK-ALKALI SYNDROME [None]
  - NOCTURIA [None]
  - POLYDIPSIA [None]
  - POLYURIA [None]
